FAERS Safety Report 13002156 (Version 1)
Quarter: 2016Q4

REPORT INFORMATION
  Report Type: Spontaneous
  Country: US (occurrence: US)
  Receive Date: 20161206
  Receipt Date: 20161206
  Transmission Date: 20170207
  Serious: No
  Sender: FDA-Public Use
  Company Number: US-ASTRAZENECA-2016SF25627

PATIENT
  Sex: Female
  Weight: 68 kg

DRUGS (2)
  1. PULMICORT FLEXHALER [Suspect]
     Active Substance: BUDESONIDE
     Indication: ASTHMA
     Dosage: 90 MCG TWO PUFFS TWICE A DAY
     Route: 055
  2. ALBUTEROL. [Concomitant]
     Active Substance: ALBUTEROL
     Indication: PROPHYLAXIS
     Dosage: 1 PUFF AS NEEDED
     Route: 055

REACTIONS (8)
  - Wheezing [Unknown]
  - Cough [Unknown]
  - Intentional product misuse [Unknown]
  - Chest discomfort [Unknown]
  - Dyspnoea [Unknown]
  - Malaise [Unknown]
  - Drug ineffective [Unknown]
  - Product quality issue [Unknown]
